FAERS Safety Report 6516521-1 (Version None)
Quarter: 2009Q4

REPORT INFORMATION
  Report Type: 
  Country: None (occurrence: None)
  Receive Date: 20091223
  Receipt Date: 20091214
  Transmission Date: 20100525
  Serious: Yes (Hospitalization, Other)
  Sender: FDA-Public Use
  Company Number: US-JNJFOC-20091204972

PATIENT
  Sex: Female
  Weight: 63.5 kg

DRUGS (4)
  1. DURAGESIC-100 [Suspect]
     Indication: INTERVERTEBRAL DISC DEGENERATION
     Dosage: 100 UG/HR AND  50 UG/HR
     Route: 062
  2. FENTANYL-100 [Suspect]
     Indication: INTERVERTEBRAL DISC DEGENERATION
     Dosage: 100 UG/HR AND  50 UG/HR
     Route: 062
     Dates: start: 20091101
  3. UNKNOWN MEDICATION [Concomitant]
     Indication: THYROID DISORDER
     Route: 065
  4. PAXIL [Concomitant]
     Route: 065

REACTIONS (4)
  - BREAST CANCER [None]
  - LYMPHOMA [None]
  - PRODUCT ADHESION ISSUE [None]
  - PRODUCT QUALITY ISSUE [None]
